FAERS Safety Report 14481392 (Version 3)
Quarter: 2018Q1

REPORT INFORMATION
  Report Type: Spontaneous
  Country: US (occurrence: US)
  Receive Date: 20180202
  Receipt Date: 20180313
  Transmission Date: 20180509
  Serious: Yes (Hospitalization, Other)
  Sender: FDA-Public Use
  Company Number: US-SUNOVION-2018SUN000387

PATIENT
  Sex: Female
  Weight: 96.6 kg

DRUGS (4)
  1. LATUDA [Suspect]
     Active Substance: LURASIDONE HYDROCHLORIDE
     Dosage: 40 MG, UNK
     Route: 048
  2. INVEGA [Concomitant]
     Active Substance: PALIPERIDONE
  3. LATUDA [Suspect]
     Active Substance: LURASIDONE HYDROCHLORIDE
     Indication: SCHIZOPHRENIA
     Dosage: 80 MG, UNK
     Route: 048
  4. ZYPREXA [Concomitant]
     Active Substance: OLANZAPINE
     Dosage: 15 MG, QD

REACTIONS (5)
  - Akathisia [Unknown]
  - Schizophrenia [Unknown]
  - Movement disorder [Recovered/Resolved]
  - Psychotic disorder [Unknown]
  - Drug ineffective [Not Recovered/Not Resolved]
